FAERS Safety Report 22145271 (Version 2)
Quarter: 2023Q2

REPORT INFORMATION
  Report Type: Spontaneous
  Country: US (occurrence: US)
  Receive Date: 20230328
  Receipt Date: 20230521
  Transmission Date: 20230721
  Serious: Yes (Death)
  Sender: FDA-Public Use
  Company Number: US-BRISTOL-MYERS SQUIBB COMPANY-2023-044024

PATIENT
  Age: 75 Year
  Sex: Male

DRUGS (6)
  1. OPDIVO [Suspect]
     Active Substance: NIVOLUMAB
     Indication: Pancreatic carcinoma
     Dosage: Q 14 DAYS (EVERY 14 DAYS)
     Route: 042
     Dates: start: 20221102, end: 20230118
  2. OPDIVO [Suspect]
     Active Substance: NIVOLUMAB
     Dosage: Q 14 DAYS (EVERY 14 DAYS)
     Route: 042
     Dates: start: 20221130
  3. OPDIVO [Suspect]
     Active Substance: NIVOLUMAB
     Dosage: Q 14 DAYS (EVERY 14 DAYS)
     Route: 042
     Dates: start: 20221214
  4. OPDIVO [Suspect]
     Active Substance: NIVOLUMAB
     Dosage: Q 14 DAYS (EVERY 14 DAYS)
     Route: 042
     Dates: start: 20230104
  5. ABRAXANE [Concomitant]
     Active Substance: PACLITAXEL
     Indication: Pancreatic carcinoma
     Route: 042
     Dates: start: 20221102, end: 20230118
  6. GEMZAR [Concomitant]
     Active Substance: GEMCITABINE HYDROCHLORIDE
     Indication: Pancreatic carcinoma
     Route: 042
     Dates: start: 20221102, end: 20230118

REACTIONS (2)
  - Malignant neoplasm progression [Fatal]
  - Off label use [Unknown]

NARRATIVE: CASE EVENT DATE: 20230316
